FAERS Safety Report 6406969-8 (Version None)
Quarter: 2009Q4

REPORT INFORMATION
  Report Type: 
  Country: None (occurrence: None)
  Receive Date: 20091020
  Receipt Date: 20091012
  Transmission Date: 20100525
  Serious: Yes (Hospitalization, Other)
  Sender: FDA-Public Use
  Company Number: CN-PFIZER INC-2009281942

PATIENT
  Age: 83 Year

DRUGS (4)
  1. METHYLPREDNISOLONE ACETATE AND METHYLPREDNISOLONE AND METHYLPREDNISOLO [Suspect]
     Dosage: 40 MG, 2X/DAY
     Route: 042
     Dates: start: 20080413, end: 20080419
  2. CIPROFLOXACIN HYDROCHLORIDE [Suspect]
     Indication: BRONCHITIS
     Dosage: 400 MG, 1X/DAY
     Dates: start: 20080413, end: 20080414
  3. AMINOPHYLLINE [Concomitant]
     Indication: BRONCHITIS
     Dosage: 0.2 G, 2X/DAY
     Route: 042
     Dates: start: 20080414
  4. PREDNISONE [Concomitant]

REACTIONS (1)
  - SCHIZOPHRENIFORM DISORDER [None]
